FAERS Safety Report 6489854-5 (Version None)
Quarter: 2009Q4

REPORT INFORMATION
  Report Type: 
  Country: None (occurrence: None)
  Receive Date: 20091211
  Receipt Date: 20091202
  Transmission Date: 20100525
  Serious: Yes (Other)
  Sender: FDA-Public Use
  Company Number: IN-RANBAXY-2009RR-29539

PATIENT
  Age: 44 Year
  Sex: Male

DRUGS (2)
  1. GABAPENTIN [Suspect]
     Indication: NEURALGIA
     Dosage: 300 MG, TID
     Route: 048
  2. AMITRIPTYLINE [Concomitant]
     Indication: RASH
     Route: 048

REACTIONS (1)
  - DRUG ERUPTION [None]
